FAERS Safety Report 14777958 (Version 1)
Quarter: 2018Q2

REPORT INFORMATION
  Report Type: Spontaneous
  Country: US (occurrence: US)
  Receive Date: 20180412
  Receipt Date: 20180412
  Transmission Date: 20180711
  Serious: Yes (Hospitalization)
  Sender: FDA-Public Use
  Company Number: None

PATIENT
  Age: 83 Year
  Sex: Male
  Weight: 102.15 kg

DRUGS (12)
  1. VITAMIN D [Concomitant]
     Active Substance: CHOLECALCIFEROL
  2. LOSARTAN. [Concomitant]
     Active Substance: LOSARTAN
  3. CAPECITABINE. [Suspect]
     Active Substance: CAPECITABINE
     Indication: COLON CANCER
     Route: 048
     Dates: start: 20171221, end: 20180411
  4. VITAMIN B12 [Concomitant]
     Active Substance: CYANOCOBALAMIN
  5. ROSUVASTATIN. [Concomitant]
     Active Substance: ROSUVASTATIN
  6. KRILL OIL [Concomitant]
     Active Substance: DIETARY SUPPLEMENT
  7. GLIPIZIDE. [Concomitant]
     Active Substance: GLIPIZIDE
  8. PIOGLITAZONE. [Concomitant]
     Active Substance: PIOGLITAZONE
  9. AMLODIPINE [Concomitant]
     Active Substance: AMLODIPINE BESYLATE
  10. ASPIRIN. [Concomitant]
     Active Substance: ASPIRIN
  11. CILOSTAZOL. [Concomitant]
     Active Substance: CILOSTAZOL
  12. METOPROLOL TARTRATE. [Concomitant]
     Active Substance: METOPROLOL TARTRATE

REACTIONS (1)
  - Disease progression [None]

NARRATIVE: CASE EVENT DATE: 20180411
